APPROVED DRUG PRODUCT: METHIMAZOLE
Active Ingredient: METHIMAZOLE
Strength: 5MG
Dosage Form/Route: TABLET;ORAL
Application: A209827 | Product #001 | TE Code: AB
Applicant: MACLEODS PHARMACEUTICALS LTD
Approved: May 24, 2023 | RLD: No | RS: No | Type: RX